FAERS Safety Report 14845537 (Version 1)
Quarter: 2018Q2

REPORT INFORMATION
  Report Type: Spontaneous
  Country: US (occurrence: US)
  Receive Date: 20180504
  Receipt Date: 20180504
  Transmission Date: 20180711
  Serious: No
  Sender: FDA-Public Use
  Company Number: US-PFIZER INC-2018172786

PATIENT
  Sex: Female

DRUGS (1)
  1. CHILDRENS ADVIL [Suspect]
     Active Substance: IBUPROFEN
     Dosage: ONE DOSE OF 3 TEASPOONS

REACTIONS (3)
  - Drug administered to patient of inappropriate age [Unknown]
  - Stomatitis [Unknown]
  - Rash [Unknown]
